FAERS Safety Report 8450416-1 (Version None)
Quarter: 2012Q2

REPORT INFORMATION
  Report Type: 
  Country: None (occurrence: None)
  Receive Date: 20120613
  Receipt Date: 20120604
  Transmission Date: 20120825
  Serious: Yes (Hospitalization)
  Sender: FDA-Public Use
  Company Number: 2012-FR-0006

PATIENT
  Age: 90 Year
  Sex: Female

DRUGS (10)
  1. LYRICA [Concomitant]
  2. DOLIPRANE (PHENACETYL) [Concomitant]
  3. FENTANYL [Suspect]
     Indication: WOUND COMPLICATION
     Dosage: UP TO 3 TIMES A DAY
     Route: 060
     Dates: start: 20120515
  4. ASPIRIN [Concomitant]
  5. NICORANDIL (NICORANDIL) [Concomitant]
  6. CLOPIDEGREL [Concomitant]
  7. LORAZEPAM [Concomitant]
  8. NEBIVOLOL HCL [Concomitant]
  9. RANITIDINE HYDROCHLORIDE [Concomitant]
  10. ATORVASTATIN CALCIUM [Concomitant]

REACTIONS (3)
  - OFF LABEL USE [None]
  - SOMNOLENCE [None]
  - HYPOTHERMIA [None]
